FAERS Safety Report 16387014 (Version 2)
Quarter: 2019Q2

REPORT INFORMATION
  Report Type: Spontaneous
  Country: BR (occurrence: BR)
  Receive Date: 20190604
  Receipt Date: 20190621
  Transmission Date: 20190711
  Serious: Yes (Other)
  Sender: FDA-Public Use
  Company Number: BR-AMGEN-BRASP2019087087

PATIENT
  Age: 47 Year
  Sex: Female
  Weight: 90 kg

DRUGS (4)
  1. PREGABALIN. [Concomitant]
     Active Substance: PREGABALIN
     Indication: FIBROMYALGIA
     Dosage: 75 MILLIGRAM, QD
     Route: 048
     Dates: start: 2013
  2. ENBREL [Suspect]
     Active Substance: ETANERCEPT
     Indication: ANKYLOSING SPONDYLITIS
     Dosage: 50 MILLIGRAM, QWK
     Route: 058
     Dates: start: 2017, end: 201804
  3. CYMBI [AMPICILLIN TRIHYDRATE] [Concomitant]
     Indication: FIBROMYALGIA
     Dosage: 30 MILLIGRAM, QD
     Route: 048
     Dates: start: 2017
  4. LEVOTHYROXINE. [Concomitant]
     Active Substance: LEVOTHYROXINE
     Indication: THYROIDECTOMY
     Dosage: 150 MILLIGRAM, QD
     Route: 048
     Dates: start: 201603

REACTIONS (4)
  - Immune system disorder [Unknown]
  - Chills [Unknown]
  - Respiratory tract infection [Unknown]
  - Urinary tract infection [Unknown]
